FAERS Safety Report 5983895-X (Version None)
Quarter: 2008Q4

REPORT INFORMATION
  Report Type: 
  Country: None (occurrence: None)
  Receive Date: 20081208
  Receipt Date: 20081006
  Transmission Date: 20090506
  Serious: Yes (Other)
  Sender: FDA-Public Use
  Company Number: US-AMGEN-QUU311680

PATIENT
  Sex: Female
  Weight: 89 kg

DRUGS (5)
  1. ENBREL [Suspect]
     Indication: RHEUMATOID ARTHRITIS
     Route: 058
     Dates: start: 20060501, end: 20070601
  2. PIROXICAM [Concomitant]
     Route: 048
     Dates: start: 20050101, end: 20070601
  3. LIPITOR [Concomitant]
     Route: 048
     Dates: start: 20040101
  4. PROPRANOLOL [Concomitant]
     Route: 048
     Dates: start: 20010101
  5. NIASPAN [Concomitant]
     Route: 048
     Dates: start: 20010101

REACTIONS (2)
  - BREAST CANCER [None]
  - SARCOIDOSIS [None]
